FAERS Safety Report 11037841 (Version 1)
Quarter: 2015Q2

REPORT INFORMATION
  Report Type: Spontaneous
  Country: US (occurrence: US)
  Receive Date: 20150416
  Receipt Date: 20150416
  Transmission Date: 20150821
  Serious: No
  Sender: FDA-Public Use
  Company Number: US-DRREDDYS-USA/USA/15/0046274

PATIENT
  Age: 20 Year
  Sex: Female

DRUGS (2)
  1. ZENATANE [Suspect]
     Active Substance: ISOTRETINOIN
     Indication: ACNE
     Route: 048
     Dates: start: 20141017, end: 20150130
  2. ZENATANE [Suspect]
     Active Substance: ISOTRETINOIN
     Route: 048
     Dates: start: 20150130, end: 20150130

REACTIONS (6)
  - Nausea [Unknown]
  - Vomiting [Unknown]
  - Burning sensation [Unknown]
  - Dizziness [Unknown]
  - Lip dry [Unknown]
  - Migraine [Unknown]

NARRATIVE: CASE EVENT DATE: 20150130
